FAERS Safety Report 19149425 (Version 1)
Quarter: 2021Q2

REPORT INFORMATION
  Report Type: Spontaneous
  Country: US (occurrence: US)
  Receive Date: 20210416
  Receipt Date: 20210416
  Transmission Date: 20210717
  Serious: No
  Sender: FDA-Public Use
  Company Number: US-SA-2021SA096964

PATIENT
  Age: 66 Year
  Sex: Female

DRUGS (1)
  1. ALLEGRA [Suspect]
     Active Substance: FEXOFENADINE HYDROCHLORIDE
     Indication: DERMATITIS ALLERGIC
     Dosage: 60 MG

REACTIONS (4)
  - Wrong technique in product usage process [Unknown]
  - Illness [Unknown]
  - Withdrawal syndrome [Unknown]
  - Depressed mood [Unknown]
